FAERS Safety Report 7518117-1 (Version None)
Quarter: 2011Q2

REPORT INFORMATION
  Report Type: 
  Country: None (occurrence: None)
  Receive Date: 20110602
  Receipt Date: 20110523
  Transmission Date: 20111010
  Serious: Yes (Death, Other)
  Sender: FDA-Public Use
  Company Number: JP-CEPHALON-2011001752

PATIENT
  Age: 82 Year
  Sex: Male
  Weight: 47 kg

DRUGS (18)
  1. BENZBROMARONE [Concomitant]
     Dates: start: 20110124, end: 20110127
  2. BENDAMUSTINE HCL [Suspect]
     Indication: MANTLE CELL LYMPHOMA
     Route: 042
     Dates: start: 20110119, end: 20110120
  3. BENDAMUSTINE HCL [Suspect]
     Route: 042
     Dates: start: 20110217, end: 20110218
  4. DEXTROMETHORPHAN HYDROBROMIDE [Concomitant]
     Dates: start: 20110402, end: 20110415
  5. RAMOSETRON HYDROCHLORIDE [Concomitant]
     Dates: start: 20110119, end: 20110317
  6. HYDROCORTISONE SODIUM PHOSPHATE [Concomitant]
     Dates: start: 20110118, end: 20110315
  7. LOXOPROFEN SODIUM [Concomitant]
     Dates: start: 20110225, end: 20110301
  8. DEXAMETHASONE [Concomitant]
     Dates: start: 20110119, end: 20110317
  9. RITUXIMAB [Suspect]
     Indication: MANTLE CELL LYMPHOMA
     Route: 042
     Dates: start: 20110118, end: 20110315
  10. RAMOSETRON HYDROCHLORIDE [Concomitant]
  11. PREDNISOLONE ACETATE [Concomitant]
     Dates: start: 20110402, end: 20110417
  12. BENDAMUSTINE HCL [Suspect]
     Route: 042
     Dates: start: 20110316, end: 20110317
  13. HEPARIN SODIUM [Concomitant]
  14. TAMSULOSIN HYDROCHLORIDE [Concomitant]
     Dates: end: 20110415
  15. FLAVINE ADENINE DINUCLEOTIDE DISODIUM [Concomitant]
     Dates: end: 20110415
  16. DEXAMETHASONE SODIUM PHOSPHATE [Concomitant]
  17. FUROSEMIDE [Concomitant]
     Dates: end: 20110226
  18. BICALUTAMIDE [Concomitant]
     Dates: end: 20110415

REACTIONS (12)
  - CARDIAC FAILURE [None]
  - PERIARTHRITIS [None]
  - COUGH [None]
  - STOMATITIS [None]
  - ECZEMA [None]
  - NEUTROPHIL COUNT DECREASED [None]
  - CYTOMEGALOVIRUS INFECTION [None]
  - BRONCHITIS [None]
  - FUNGAL INFECTION [None]
  - PNEUMOCYSTIS JIROVECI PNEUMONIA [None]
  - STAPHYLOCOCCAL INFECTION [None]
  - DIARRHOEA [None]
